FAERS Safety Report 8266401-9 (Version None)
Quarter: 2012Q2

REPORT INFORMATION
  Report Type: 
  Country: None (occurrence: None)
  Receive Date: 20120406
  Receipt Date: 20120329
  Transmission Date: 20120825
  Serious: Yes (Life-Threatening, Hospitalization)
  Sender: FDA-Public Use
  Company Number: AT-TEVA-331970USA

PATIENT
  Sex: Female
  Weight: 73 kg

DRUGS (3)
  1. TREANDA [Suspect]
     Indication: MULTIPLE MYELOMA
     Route: 042
     Dates: start: 20110902
  2. BORTEZOMIB [Suspect]
     Indication: MULTIPLE MYELOMA
     Route: 042
     Dates: start: 20110902, end: 20120217
  3. DEXAMETHASONE [Concomitant]
     Indication: MULTIPLE MYELOMA
     Route: 042
     Dates: start: 20110902, end: 20120217

REACTIONS (3)
  - FEBRILE INFECTION [None]
  - PANCYTOPENIA [None]
  - CLOSTRIDIAL INFECTION [None]
